FAERS Safety Report 7747024-4 (Version None)
Quarter: 2011Q3

REPORT INFORMATION
  Report Type: 
  Country: None (occurrence: None)
  Receive Date: 20110913
  Receipt Date: 20110907
  Transmission Date: 20111222
  Serious: Yes (Other)
  Sender: FDA-Public Use
  Company Number: PHEH2011US00448

PATIENT
  Sex: Female

DRUGS (9)
  1. MORPHINE [Concomitant]
  2. OXYCODONE HCL [Concomitant]
  3. COREG [Concomitant]
     Dosage: 25 MG, BID
  4. ZOMETA [Suspect]
  5. SIMVASTATIN [Concomitant]
  6. PERCOCET [Concomitant]
  7. ASPIRIN [Concomitant]
  8. SPIRONOLACTONE [Concomitant]
  9. DIOVAN [Concomitant]
     Dosage: 80 MG, DAILY

REACTIONS (23)
  - DISABILITY [None]
  - HYPERLIPIDAEMIA [None]
  - DECREASED INTEREST [None]
  - PERIPHERAL VASCULAR DISORDER [None]
  - ANAEMIA [None]
  - ANGINA UNSTABLE [None]
  - PAIN IN JAW [None]
  - INTERVERTEBRAL DISC DEGENERATION [None]
  - OSTEONECROSIS OF JAW [None]
  - DEFORMITY [None]
  - ANXIETY [None]
  - AORTIC ANEURYSM [None]
  - CEREBROVASCULAR ACCIDENT [None]
  - BACK PAIN [None]
  - PAIN [None]
  - CARDIAC FAILURE CONGESTIVE [None]
  - CHRONIC OBSTRUCTIVE PULMONARY DISEASE [None]
  - CORONARY ARTERY DISEASE [None]
  - ARTERIOSCLEROSIS [None]
  - IMPAIRED WORK ABILITY [None]
  - HYPERTENSION [None]
  - BREAST CANCER [None]
  - RADICULOPATHY [None]
